FAERS Safety Report 4889966-3 (Version None)
Quarter: 2006Q1

REPORT INFORMATION
  Report Type: 
  Country: None (occurrence: None)
  Receive Date: 20060124
  Receipt Date: 20060113
  Transmission Date: 20060701
  Serious: Yes (Other)
  Sender: FDA-Public Use
  Company Number: US-AVENTIS-200610591US

PATIENT
  Age: 77 Year
  Sex: Male
  Weight: 68.2 kg

DRUGS (8)
  1. LANTUS [Suspect]
     Indication: DIABETES MELLITUS NON-INSULIN-DEPENDENT
     Dosage: DOSE UNIT: UNITS
     Dates: start: 20051201
  2. LANTUS [Suspect]
     Dosage: DOSE UNIT: UNITS
     Dates: start: 20051201
  3. OPTICLIK (INSULIN INJECTION PEN) [Suspect]
  4. HUMALOG [Concomitant]
     Dosage: DOSE: UNK
  5. VERAPAMIL [Concomitant]
     Dosage: DOSE: UNK
  6. PLAVIX [Concomitant]
     Dosage: DOSE: UNK
  7. ZOCOR [Concomitant]
     Dosage: DOSE: UNK
  8. ASPIRIN [Concomitant]
     Dosage: DOSE: UNK

REACTIONS (4)
  - BLOOD GLUCOSE INCREASED [None]
  - CONFUSIONAL STATE [None]
  - HYPOGLYCAEMIA [None]
  - VISION BLURRED [None]
